FAERS Safety Report 6992536-4 (Version None)
Quarter: 2010Q3

REPORT INFORMATION
  Report Type: 
  Country: None (occurrence: None)
  Receive Date: 20100916
  Receipt Date: 20100916
  Transmission Date: 20110219
  Serious: Yes (Other)
  Sender: FDA-Public Use
  Company Number: None

PATIENT
  Age: 41 Year
  Sex: Male
  Weight: 90.7194 kg

DRUGS (1)
  1. DOXAZOSIN MESYLATE [Suspect]
     Indication: PROSTATOMEGALY
     Dosage: 1 PILL ONCE A DAY
     Dates: start: 20100915, end: 20100915

REACTIONS (5)
  - DIZZINESS [None]
  - FALL [None]
  - LOSS OF CONSCIOUSNESS [None]
  - NAUSEA [None]
  - SOMNOLENCE [None]
